FAERS Safety Report 11157875 (Version 2)
Quarter: 2015Q2

REPORT INFORMATION
  Report Type: Spontaneous
  Country: FR (occurrence: None)
  Receive Date: 20150601
  Receipt Date: 20150609
  Transmission Date: 20150821
  Serious: Yes (Hospitalization, Other)
  Sender: FDA-Public Use
  Company Number: FR2015GSK070544

PATIENT
  Age: 53 Year
  Sex: Male

DRUGS (8)
  1. PREZISTA [Suspect]
     Active Substance: DARUNAVIR ETHANOLATE
     Indication: HIV INFECTION
     Route: 048
     Dates: start: 20101129
  2. CELCENTRI (MARAVIROC) [Concomitant]
  3. INTELENCE [Suspect]
     Active Substance: ETRAVIRINE
     Indication: HIV INFECTION
     Route: 048
     Dates: start: 20101129
  4. TRUVADA (EMTRICITABINE TENOFOVIR DISOPROXIL FUMARATE) [Concomitant]
  5. ISENTRESS [Concomitant]
     Active Substance: RALTEGRAVIR POTASSIUM
  6. TIVICAY [Suspect]
     Active Substance: DOLUTEGRAVIR SODIUM
     Indication: HIV INFECTION
     Route: 048
     Dates: start: 20141030
  7. NORVIR [Suspect]
     Active Substance: RITONAVIR
     Indication: HIV INFECTION
     Route: 048
     Dates: start: 20101129
  8. CELSENTRI (MARAVIROC) [Concomitant]

REACTIONS (2)
  - Pancreatic necrosis [None]
  - Pancreatitis acute [None]

NARRATIVE: CASE EVENT DATE: 201412
